FAERS Safety Report 7439360-6 (Version None)
Quarter: 2011Q2

REPORT INFORMATION
  Report Type: 
  Country: None (occurrence: None)
  Receive Date: 20110427
  Receipt Date: 20110330
  Transmission Date: 20111010
  Serious: Yes (Other)
  Sender: FDA-Public Use
  Company Number: US-BAYER-200934372NA

PATIENT
  Age: 84 Year
  Sex: Male

DRUGS (24)
  1. VANCOMYCIN [Concomitant]
     Dosage: UNK
     Dates: start: 20061108
  2. LIPITOR [Concomitant]
     Dosage: 20 MG, QD
     Route: 048
  3. DOBUTAMINE [Concomitant]
  4. ACETAMINOPHEN [Concomitant]
  5. TRASYLOL [Suspect]
     Indication: CORONARY ARTERY BYPASS
  6. OXYCODONE [Concomitant]
  7. TRASYLOL [Suspect]
     Indication: AORTIC VALVE REPLACEMENT
     Dosage: UNK
     Dates: start: 20061103, end: 20061103
  8. DIOVAN [Concomitant]
     Indication: DIURETIC THERAPY
     Dosage: 160/12.5 DAILY
     Route: 048
  9. AMIODARONE [Concomitant]
  10. HEPARIN [Concomitant]
     Dosage: 2200 IU
     Route: 042
     Dates: start: 20061103, end: 20061103
  11. CEFAZOLIN [Concomitant]
     Dosage: 1 G, UNK
     Dates: start: 20061103, end: 20061103
  12. MIDAZOLAM [Concomitant]
     Dosage: 2 MG, UNK
     Route: 042
     Dates: start: 20061103, end: 20061103
  13. PLAVIX [Concomitant]
  14. LABETALOL [Concomitant]
  15. HEPARIN [Concomitant]
     Dosage: 20 ML, UNK
     Route: 042
     Dates: start: 20061103, end: 20061103
  16. PHENYLEPHRINE HCL [Concomitant]
     Dosage: 1 ML, UNK
     Route: 042
     Dates: start: 20061103, end: 20061103
  17. CEFEPIME [Concomitant]
  18. IMDUR [Concomitant]
     Indication: CHEST PAIN
     Dosage: 60 MG, QD
     Route: 048
  19. NORVASC [Concomitant]
     Indication: HYPERTENSION
     Dosage: 10 MG, QD
     Route: 048
  20. SPIRIVA [Concomitant]
     Indication: CHRONIC OBSTRUCTIVE PULMONARY DISEASE
     Dosage: 1 INHALATION DAILY
  21. INSULIN HUMAN [Concomitant]
  22. ALBUMIN [ALBUMEN] [Concomitant]
     Dosage: 50 ML, UNK
     Route: 042
     Dates: start: 20061103, end: 20061103
  23. MANNITOL [Concomitant]
     Dosage: 50 MG, UNK
     Route: 042
     Dates: start: 20061103, end: 20061103
  24. FENTANYL [Concomitant]

REACTIONS (12)
  - FEAR [None]
  - UNEVALUABLE EVENT [None]
  - DEPRESSION [None]
  - MULTI-ORGAN FAILURE [None]
  - INJURY [None]
  - ANXIETY [None]
  - PAIN [None]
  - NERVOUSNESS [None]
  - RENAL INJURY [None]
  - EMOTIONAL DISTRESS [None]
  - RENAL FAILURE [None]
  - ANHEDONIA [None]
